FAERS Safety Report 10282499 (Version 2)
Quarter: 2014Q3

REPORT INFORMATION
  Report Type: Spontaneous
  Country: SE (occurrence: SE)
  Receive Date: 20140707
  Receipt Date: 20140929
  Transmission Date: 20150326
  Serious: Yes (Hospitalization, Other)
  Sender: FDA-Public Use
  Company Number: SE-ELI_LILLY_AND_COMPANY-SE201406009109

PATIENT
  Age: 33 Year
  Sex: Male

DRUGS (1)
  1. ZYPADHERA [Suspect]
     Active Substance: OLANZAPINE PAMOATE
     Indication: PRODUCT USED FOR UNKNOWN INDICATION
     Dosage: 300 MG, MONTHLY (1/M)
     Route: 030
     Dates: start: 201101

REACTIONS (7)
  - Sedation [Recovered/Resolved]
  - Agitation [Recovered/Resolved]
  - Dyskinesia [Recovered/Resolved]
  - Blood pressure fluctuation [Recovered/Resolved]
  - Fatigue [Recovered/Resolved]
  - Pulse abnormal [Recovered/Resolved]
  - Unresponsive to stimuli [Recovered/Resolved]

NARRATIVE: CASE EVENT DATE: 20140619
